FAERS Safety Report 6326663-1 (Version None)
Quarter: 2009Q3

REPORT INFORMATION
  Report Type: 
  Country: None (occurrence: None)
  Receive Date: 20090825
  Receipt Date: 20090812
  Transmission Date: 20100115
  Serious: Yes (Other)
  Sender: FDA-Public Use
  Company Number: KR-PFIZER INC-2009255825

PATIENT

DRUGS (1)
  1. LYRICA [Suspect]
     Dosage: UNK
     Route: 048

REACTIONS (5)
  - DIZZINESS [None]
  - NERVOUS SYSTEM DISORDER [None]
  - OEDEMA [None]
  - TINNITUS [None]
  - VESTIBULAR NEURONITIS [None]
